FAERS Safety Report 13759193 (Version 1)
Quarter: 2017Q3

REPORT INFORMATION
  Report Type: Spontaneous
  Country: US (occurrence: US)
  Receive Date: 20170717
  Receipt Date: 20170717
  Transmission Date: 20171127
  Serious: No
  Sender: FDA-Public Use
  Company Number: US-LEXICON PHARMACEUTICALS, INC-17-1606-00446

PATIENT
  Age: 74 Year
  Sex: Female

DRUGS (13)
  1. SOTALO [Concomitant]
  2. AFINITOR [Concomitant]
     Active Substance: EVEROLIMUS
  3. COMPAZINE [Concomitant]
     Active Substance: PROCHLORPERAZINE MALEATE
  4. TELOTRISTAT ETHYL [Suspect]
     Active Substance: TELOTRISTAT ETHYL
     Indication: CARCINOID SYNDROME
     Route: 048
     Dates: start: 201705, end: 2017
  5. SANDOSTATIN [Concomitant]
     Active Substance: OCTREOTIDE ACETATE
  6. MIDAMOR [Concomitant]
     Active Substance: AMILORIDE HYDROCHLORIDE
  7. LASIX [Concomitant]
     Active Substance: FUROSEMIDE
  8. MULTIVITAMIN [Concomitant]
     Active Substance: VITAMINS
  9. DECADRON [Concomitant]
     Active Substance: DEXAMETHASONE
  10. KLOR-CON [Concomitant]
     Active Substance: POTASSIUM CHLORIDE
  11. TELOTRISTAT ETHYL [Suspect]
     Active Substance: TELOTRISTAT ETHYL
     Route: 048
     Dates: start: 2017
  12. ELIQUIS [Concomitant]
     Active Substance: APIXABAN
  13. LEVOTHYROXIN [Concomitant]
     Active Substance: LEVOTHYROXINE

REACTIONS (1)
  - Constipation [Recovering/Resolving]

NARRATIVE: CASE EVENT DATE: 201705
